FAERS Safety Report 5658032-1 (Version None)
Quarter: 2008Q1

REPORT INFORMATION
  Report Type: 
  Country: None (occurrence: None)
  Receive Date: 20080310
  Receipt Date: 20070302
  Transmission Date: 20080703
  Serious: No
  Sender: FDA-Public Use
  Company Number: US-BAYER-200614954BCC

PATIENT
  Sex: Female
  Weight: 69 kg

DRUGS (4)
  1. ALEVE [Suspect]
     Indication: DRUG USE FOR UNKNOWN INDICATION
     Dosage: UNIT DOSE: 220 MG
     Route: 048
     Dates: start: 20060101
  2. HYDRAL-HCTZ [Concomitant]
  3. LORAZEPAM [Concomitant]
     Indication: NERVOUSNESS
  4. ASPIRIN [Concomitant]

REACTIONS (7)
  - ABDOMINAL DISTENSION [None]
  - FLATULENCE [None]
  - GASTRIC DISORDER [None]
  - HYPERTENSION [None]
  - OEDEMA PERIPHERAL [None]
  - PARAESTHESIA [None]
  - SKIN TIGHTNESS [None]
